FAERS Safety Report 6562900-6 (Version None)
Quarter: 2010Q1

REPORT INFORMATION
  Report Type: 
  Country: None (occurrence: None)
  Receive Date: 20100130
  Receipt Date: 20091120
  Transmission Date: 20100710
  Serious: No
  Sender: FDA-Public Use
  Company Number: US-ABBOTT-09P-163-0611090-00

PATIENT
  Sex: Female

DRUGS (3)
  1. HUMIRA [Suspect]
     Indication: DRUG USE FOR UNKNOWN INDICATION
  2. HUMIRA [Suspect]
     Route: 058
  3. HUMIRA [Suspect]

REACTIONS (2)
  - HERPES ZOSTER [None]
  - INFLUENZA [None]
